FAERS Safety Report 12896440 (Version 1)
Quarter: 2016Q4

REPORT INFORMATION
  Report Type: Spontaneous
  Country: US (occurrence: US)
  Receive Date: 20161031
  Receipt Date: 20161031
  Transmission Date: 20170207
  Serious: No
  Sender: FDA-Public Use
  Company Number: US-JAZZ-2016-US-016531

PATIENT
  Age: 50 Year
  Sex: Male

DRUGS (24)
  1. WELLBUTRIN [Suspect]
     Active Substance: BUPROPION HYDROCHLORIDE
     Indication: PRODUCT USED FOR UNKNOWN INDICATION
     Dosage: 400 MG, QD
  2. PROAIR HFA [Concomitant]
     Active Substance: ALBUTEROL SULFATE
  3. XYREM [Suspect]
     Active Substance: SODIUM OXYBATE
     Indication: NARCOLEPSY
     Dosage: 2.5 G, BID
     Route: 048
     Dates: start: 20160730, end: 201608
  4. XYREM [Suspect]
     Active Substance: SODIUM OXYBATE
     Indication: CATAPLEXY
     Dosage: 3 G, BID
     Route: 048
     Dates: start: 201608
  5. LOPRESSOR [Concomitant]
     Active Substance: METOPROLOL TARTRATE
  6. CLONIDINE HYDROCHLORIDE. [Concomitant]
     Active Substance: CLONIDINE HYDROCHLORIDE
  7. SUDAFED [Concomitant]
     Active Substance: PSEUDOEPHEDRINE HYDROCHLORIDE
  8. PRILOSEC [Concomitant]
     Active Substance: OMEPRAZOLE MAGNESIUM
  9. ALEVE [Concomitant]
     Active Substance: NAPROXEN SODIUM
  10. LAMICTAL [Concomitant]
     Active Substance: LAMOTRIGINE
  11. METOPROLOL SUCCINATE. [Concomitant]
     Active Substance: METOPROLOL SUCCINATE
  12. ASTEPRO [Concomitant]
     Active Substance: AZELASTINE HYDROCHLORIDE
  13. MULTIVITAMINS [Concomitant]
     Active Substance: VITAMINS
  14. OMEPRAZOLE. [Concomitant]
     Active Substance: OMEPRAZOLE
  15. WELLBUTRIN [Suspect]
     Active Substance: BUPROPION HYDROCHLORIDE
     Dosage: UNK
  16. DYAZIDE [Concomitant]
     Active Substance: HYDROCHLOROTHIAZIDE\TRIAMTERENE
  17. ALLEGRA [Concomitant]
     Active Substance: FEXOFENADINE HYDROCHLORIDE
  18. METROGEL [Concomitant]
     Active Substance: METRONIDAZOLE
  19. VICTOZA [Concomitant]
     Active Substance: LIRAGLUTIDE
  20. BENADRYL ALLERGY [Concomitant]
     Active Substance: DIPHENHYDRAMINE HYDROCHLORIDE
  21. ADDERALL [Concomitant]
     Active Substance: AMPHETAMINE ASPARTATE\AMPHETAMINE SULFATE\DEXTROAMPHETAMINE SACCHARATE\DEXTROAMPHETAMINE SULFATE
  22. BUPROPION HCL [Concomitant]
     Active Substance: BUPROPION HYDROCHLORIDE
  23. FLONASE [Concomitant]
     Active Substance: FLUTICASONE PROPIONATE
  24. NAPROXEN. [Concomitant]
     Active Substance: NAPROXEN

REACTIONS (8)
  - Diarrhoea [Recovered/Resolved]
  - Irritability [Recovered/Resolved]
  - Decreased appetite [Recovered/Resolved]
  - Depression [Unknown]
  - Feeling abnormal [Recovered/Resolved]
  - Disturbance in attention [Recovered/Resolved]
  - Agitation [Recovered/Resolved]
  - Functional gastrointestinal disorder [Unknown]

NARRATIVE: CASE EVENT DATE: 201608
